FAERS Safety Report 21742450 (Version 2)
Quarter: 2022Q4

REPORT INFORMATION
  Report Type: Report from Study
  Country: FR (occurrence: FR)
  Receive Date: 20221216
  Receipt Date: 20221227
  Transmission Date: 20230113
  Serious: Yes (Life-Threatening, Other)
  Sender: FDA-Public Use
  Company Number: FR-BRISTOL-MYERS SQUIBB COMPANY-2022-154753

PATIENT
  Age: 62 Year
  Sex: Male
  Weight: 95 kg

DRUGS (16)
  1. POMALIDOMIDE [Suspect]
     Active Substance: POMALIDOMIDE
     Indication: Plasma cell myeloma refractory
     Dates: start: 20221108, end: 20221108
  2. POMALIDOMIDE [Suspect]
     Active Substance: POMALIDOMIDE
     Dates: start: 20221120, end: 20221120
  3. POMALIDOMIDE [Suspect]
     Active Substance: POMALIDOMIDE
     Dosage: EVERY DAY FROM THE 1ST TO THE 21ST DAY
     Route: 048
     Dates: start: 20221120, end: 20221120
  4. DEXAMETHASONE [Suspect]
     Active Substance: DEXAMETHASONE
     Indication: Plasma cell myeloma refractory
     Dosage: CYCLE 1 DAY 8
     Dates: start: 20221108, end: 20221108
  5. DEXAMETHASONE [Suspect]
     Active Substance: DEXAMETHASONE
     Dosage: CYCLE 1 DAY 8
     Dates: start: 20221115, end: 20221115
  6. DEXAMETHASONE [Suspect]
     Active Substance: DEXAMETHASONE
     Dosage: 40/20 MG (ACCORDING TO AGE) EVERY WEEK ON DAYS: 1, 8, 15 AND 22 2ND TO 13TH CYCLES
     Route: 048
  7. DEXAMETHASONE [Suspect]
     Active Substance: DEXAMETHASONE
     Dosage: 40/20 MG (ACCORDING TO AGE) BY ORAL ROUTE, ONCE A WEEK ON DAY 1, 8,15, 22 OF A 28-DAYS CYCLE AFTER C
     Route: 048
  8. ISATUXIMAB [Suspect]
     Active Substance: ISATUXIMAB
     Indication: Plasma cell myeloma refractory
     Dates: start: 20221108, end: 20221108
  9. ISATUXIMAB [Suspect]
     Active Substance: ISATUXIMAB
     Dates: start: 20221115, end: 20221115
  10. ISATUXIMAB [Suspect]
     Active Substance: ISATUXIMAB
     Dosage: ONCE A WEEK AT DAYS 1, 8, 15, AND 22
     Route: 042
  11. ISATUXIMAB [Suspect]
     Active Substance: ISATUXIMAB
     Dosage: EVERY 2 WEEKS ON DAYS 1 AND 15 OF A 28-DAYS CYCLE
     Route: 042
  12. CARFILZOMIB [Suspect]
     Active Substance: CARFILZOMIB
     Indication: Plasma cell myeloma refractory
     Dates: start: 20221108, end: 20221108
  13. CARFILZOMIB [Suspect]
     Active Substance: CARFILZOMIB
     Dates: start: 20221116, end: 20221116
  14. CARFILZOMIB [Suspect]
     Active Substance: CARFILZOMIB
     Dosage: TWICE WEEKLY ON DAYS 1AND 2
     Route: 042
  15. CARFILZOMIB [Suspect]
     Active Substance: CARFILZOMIB
     Dosage: TWICE WEEKLY ON DAYS 8-9 AND 15-16
     Route: 042
  16. CARFILZOMIB [Suspect]
     Active Substance: CARFILZOMIB
     Dosage: ONCE A WEEK ON DAYS 1, 8 AND 15 OF A 28-DAYS CYCLE
     Route: 042

REACTIONS (1)
  - Thrombocytopenia [Recovered/Resolved]

NARRATIVE: CASE EVENT DATE: 20221121
